FAERS Safety Report 11105349 (Version 3)
Quarter: 2015Q2

REPORT INFORMATION
  Report Type: Spontaneous
  Country: JP (occurrence: JP)
  Receive Date: 20150512
  Receipt Date: 20150613
  Transmission Date: 20150821
  Serious: Yes (Other)
  Sender: FDA-Public Use
  Company Number: PHJP2015JP006195

PATIENT
  Age: 82 Year
  Sex: Female

DRUGS (1)
  1. TEGRETOL [Suspect]
     Active Substance: CARBAMAZEPINE
     Indication: EPILEPSY
     Dosage: 200 MG, QD
     Route: 048

REACTIONS (3)
  - Anaemia macrocytic [Recovered/Resolved]
  - Haemoglobin decreased [Unknown]
  - Platelet count decreased [Unknown]
